FAERS Safety Report 5427272-9 (Version None)
Quarter: 2007Q3

REPORT INFORMATION
  Report Type: 
  Country: None (occurrence: None)
  Receive Date: 20070828
  Receipt Date: 20070817
  Transmission Date: 20080115
  Serious: Yes (Other)
  Sender: FDA-Public Use
  Company Number: AR-NOVOPROD-265516

PATIENT
  Age: 69 Year
  Sex: Female
  Weight: 84.8 kg

DRUGS (5)
  1. LEVEMIR [Suspect]
     Indication: INSULIN-REQUIRING TYPE II DIABETES MELLITUS
     Dates: start: 20070530, end: 20070601
  2. ENALAPRIL [Concomitant]
     Indication: HYPERTENSION
     Dosage: 10 MG, UNK
  3. ASPIRIN [Concomitant]
     Indication: DRUG USE FOR UNKNOWN INDICATION
     Dosage: 100 MG, UNK
  4. INSULATARD [Concomitant]
     Indication: DRUG USE FOR UNKNOWN INDICATION
     Dosage: 70 IU, UNK
  5. ACTRAPID NOVOLET [Concomitant]
     Indication: DRUG USE FOR UNKNOWN INDICATION
     Dosage: ACCORDING CONTROLS

REACTIONS (2)
  - MUSCLE RIGIDITY [None]
  - SYNCOPE [None]
